FAERS Safety Report 24250776 (Version 1)
Quarter: 2024Q3

REPORT INFORMATION
  Report Type: Spontaneous
  Country: US (occurrence: US)
  Receive Date: 20240826
  Receipt Date: 20240826
  Transmission Date: 20241017
  Serious: No
  Sender: MEDEXUS PHARMA
  Company Number: US-MEDEXUS PHARMA, INC.-2024MED00025

PATIENT
  Sex: Male

DRUGS (1)
  1. RASUVO [Suspect]
     Active Substance: METHOTREXATE SODIUM
     Dosage: UNK

REACTIONS (4)
  - Musculoskeletal stiffness [Not Recovered/Not Resolved]
  - Product dose omission issue [Unknown]
  - Pain in extremity [Not Recovered/Not Resolved]
  - Arthropathy [Not Recovered/Not Resolved]
